FAERS Safety Report 4633191-8 (Version None)
Quarter: 2005Q2

REPORT INFORMATION
  Report Type: 
  Country: None (occurrence: None)
  Receive Date: 20050408
  Receipt Date: 20050329
  Transmission Date: 20051028
  Serious: Yes (Hospitalization, Other)
  Sender: FDA-Public Use
  Company Number: 2005042722

PATIENT
  Age: 17 Year
  Sex: Male
  Weight: 75.7 kg

DRUGS (5)
  1. GENOTROPIN [Suspect]
     Indication: HYPOPITUITARISM
     Dosage: 1.3 MG (1.3 MG, DAILY), SUBCUTANEOUS
     Route: 058
     Dates: start: 20030501, end: 20050223
  2. LEVOTHYROXINE SODIUM [Concomitant]
  3. HYDROCORTISONE [Concomitant]
  4. CHORIONIC GONADOTROPHIN (CHORIONIC GONADOTROPHIN) [Concomitant]
  5. MENOTROPHIN (MENOTROPHIN) [Concomitant]

REACTIONS (2)
  - CRANIOPHARYNGIOMA [None]
  - DISEASE RECURRENCE [None]
